FAERS Safety Report 25549120 (Version 4)
Quarter: 2025Q3

REPORT INFORMATION
  Report Type: Report from Study
  Country: IN (occurrence: IN)
  Receive Date: 20250714
  Receipt Date: 20250718
  Transmission Date: 20251021
  Serious: Yes (Other)
  Sender: AMNEAL
  Company Number: IN-AMNEAL PHARMACEUTICALS-2025-AMRX-02618

PATIENT
  Age: 38 Year
  Sex: Female
  Weight: 72.4 kg

DRUGS (2)
  1. URSODIOL [Suspect]
     Active Substance: URSODIOL
     Route: 048
     Dates: start: 20250414, end: 20250414
  2. CABERGOLINE [Concomitant]
     Active Substance: CABERGOLINE
     Indication: Abortion missed
     Dosage: 0.25 MILLIGRAM, BID
     Route: 048
     Dates: start: 20250614, end: 20250615

REACTIONS (1)
  - Abortion missed [Recovered/Resolved]

NARRATIVE: CASE EVENT DATE: 20250611
